FAERS Safety Report 9883719 (Version 2)
Quarter: 2014Q3

REPORT INFORMATION
  Report Type: Spontaneous
  Country: US (occurrence: US)
  Receive Date: 20140210
  Receipt Date: 20140814
  Transmission Date: 20150326
  Serious: Yes (Death, Other)
  Sender: FDA-Public Use
  Company Number: US-009507513-1402USA003518

PATIENT
  Sex: Female
  Weight: 93.42 kg

DRUGS (1)
  1. NUVARING [Suspect]
     Active Substance: ETHINYL ESTRADIOL\ETONOGESTREL
     Indication: CONTRACEPTION
     Dosage: UNK
     Route: 067
     Dates: start: 20061025

REACTIONS (7)
  - Wheezing [Unknown]
  - Peripheral embolism [Unknown]
  - Upper-airway cough syndrome [Unknown]
  - Dyspnoea [Unknown]
  - Dyspnoea exertional [Unknown]
  - Cardio-respiratory arrest [Fatal]
  - Fatigue [Unknown]

NARRATIVE: CASE EVENT DATE: 20061113
